FAERS Safety Report 5992207-7 (Version None)
Quarter: 2008Q4

REPORT INFORMATION
  Report Type: 
  Country: None (occurrence: None)
  Receive Date: 20081202
  Receipt Date: 20080723
  Transmission Date: 20090506
  Serious: Yes (Disabling)
  Sender: FDA-Public Use
  Company Number: WAES 0807USA04637

PATIENT
  Age: 75 Year
  Sex: Female

DRUGS (6)
  1. FOSAMAX [Suspect]
     Indication: OSTEOPOROSIS
     Dosage: 70 MG/WKY/PO
     Route: 048
     Dates: start: 20021101, end: 20070801
  2. HYZAAR [Concomitant]
  3. CALCIUM (UNSPECIFIED) [Concomitant]
  4. DIGOXIN [Concomitant]
  5. DILTIAZEM HYDROCHLORIDE [Concomitant]
  6. LOVASTATIN [Concomitant]

REACTIONS (1)
  - OSTEONECROSIS [None]
